FAERS Safety Report 10439670 (Version 7)
Quarter: 2016Q1

REPORT INFORMATION
  Report Type: Report from Study
  Country: US (occurrence: US)
  Receive Date: 20140908
  Receipt Date: 20160216
  Transmission Date: 20160525
  Serious: Yes (Other)
  Sender: FDA-Public Use
  Company Number: US-SA-2013SA130273

PATIENT
  Age: 72 Year
  Sex: Female
  Weight: 178 kg

DRUGS (3)
  1. AMPYRA [Concomitant]
     Active Substance: DALFAMPRIDINE
     Route: 048
     Dates: start: 2011
  2. AUBAGIO [Suspect]
     Active Substance: TERIFLUNOMIDE
     Indication: MULTIPLE SCLEROSIS
     Route: 048
     Dates: start: 201309
  3. AUBAGIO [Suspect]
     Active Substance: TERIFLUNOMIDE
     Indication: MULTIPLE SCLEROSIS
     Route: 048
     Dates: start: 20130824

REACTIONS (29)
  - Pneumonia [Unknown]
  - Nasal congestion [Unknown]
  - Fall [Unknown]
  - Nail disorder [Unknown]
  - Herpes zoster [Unknown]
  - Aphasia [Unknown]
  - Hypoaesthesia [Unknown]
  - Pollakiuria [Unknown]
  - Salivary hypersecretion [Unknown]
  - Gastritis [Unknown]
  - Diarrhoea [Recovered/Resolved]
  - Condition aggravated [Unknown]
  - Glossodynia [Not Recovered/Not Resolved]
  - Bladder disorder [Unknown]
  - Hair growth abnormal [Unknown]
  - Limb discomfort [Unknown]
  - Bronchitis [Unknown]
  - Glossodynia [Not Recovered/Not Resolved]
  - Fatigue [Unknown]
  - Weight decreased [Unknown]
  - Urinary tract infection [Unknown]
  - Speech disorder [Unknown]
  - Libido increased [Unknown]
  - Paraesthesia [Unknown]
  - Chest discomfort [Recovered/Resolved]
  - Alopecia [Unknown]
  - Balance disorder [Not Recovered/Not Resolved]
  - Drug dose omission [Unknown]
  - Pruritus [Not Recovered/Not Resolved]

NARRATIVE: CASE EVENT DATE: 201406
